FAERS Safety Report 10469397 (Version 2)
Quarter: 2014Q4

REPORT INFORMATION
  Report Type: Spontaneous
  Country: GB (occurrence: GB)
  Receive Date: 20140923
  Receipt Date: 20141128
  Transmission Date: 20150528
  Serious: Yes (Other)
  Sender: FDA-Public Use
  Company Number: GB-AMGEN-GBRSP2014072652

PATIENT
  Age: 54 Year
  Sex: Male

DRUGS (1)
  1. ENBREL [Suspect]
     Active Substance: ETANERCEPT
     Indication: PRODUCT USED FOR UNKNOWN INDICATION
     Dosage: UNK
     Route: 065

REACTIONS (13)
  - Cardiac flutter [Unknown]
  - Blood pressure increased [Unknown]
  - Nasopharyngitis [Unknown]
  - Skin cancer [Unknown]
  - Weight decreased [Unknown]
  - Psoriasis [Unknown]
  - Tremor [Unknown]
  - Vertigo [Unknown]
  - Lower respiratory tract infection [Unknown]
  - Dizziness [Unknown]
  - Nervousness [Unknown]
  - Extrasystoles [Unknown]
  - Skin fissures [Unknown]
